FAERS Safety Report 7597552-X (Version None)
Quarter: 2011Q3

REPORT INFORMATION
  Report Type: 
  Country: None (occurrence: None)
  Receive Date: 20110708
  Receipt Date: 20110701
  Transmission Date: 20111222
  Serious: Yes (Other)
  Sender: FDA-Public Use
  Company Number: UG-B.I. PHARMACEUTICALS,INC./RIDGEFIELD-2011-DE-03895GD

PATIENT
  Age: 9 Year
  Sex: Male

DRUGS (5)
  1. LAMIVUDINE [Suspect]
     Indication: HIV INFECTION
  2. COTRIM [Suspect]
     Indication: PROPHYLAXIS
  3. NEVIRAPINE [Suspect]
     Indication: HIV INFECTION
  4. ABACAVIR [Suspect]
     Indication: HIV INFECTION
     Route: 048
  5. ZIDOVUDINE [Suspect]
     Indication: HIV INFECTION

REACTIONS (9)
  - HYPERSENSITIVITY [None]
  - PYREXIA [None]
  - DYSPNOEA [None]
  - ABDOMINAL PAIN [None]
  - PHARYNGITIS [None]
  - COUGH [None]
  - VOMITING [None]
  - MALAISE [None]
  - FATIGUE [None]
